FAERS Safety Report 24667426 (Version 1)
Quarter: 2024Q4

REPORT INFORMATION
  Report Type: Spontaneous
  Country: IT (occurrence: IT)
  Receive Date: 20241126
  Receipt Date: 20241126
  Transmission Date: 20250114
  Serious: Yes (Life-Threatening)
  Sender: JOHNSON AND JOHNSON
  Company Number: None

PATIENT
  Age: 85 Year
  Sex: Female

DRUGS (13)
  1. XARELTO [Suspect]
     Active Substance: RIVAROXABAN
     Indication: Product used for unknown indication
     Dosage: 15 MG
     Route: 048
  2. LASIX [Concomitant]
     Active Substance: FUROSEMIDE
     Indication: Product used for unknown indication
  3. DAPAGLIFLOZIN [Concomitant]
     Active Substance: DAPAGLIFLOZIN
     Indication: Product used for unknown indication
  4. Luvion [Concomitant]
     Indication: Product used for unknown indication
  5. BISOPROLOL FUMARATE [Concomitant]
     Active Substance: BISOPROLOL FUMARATE
     Indication: Product used for unknown indication
  6. LANOXIN [Concomitant]
     Active Substance: DIGOXIN
     Indication: Product used for unknown indication
  7. KCL [Concomitant]
     Active Substance: POTASSIUM CHLORIDE
     Indication: Product used for unknown indication
  8. Niferex [Concomitant]
     Indication: Product used for unknown indication
  9. PANTOPRAZOLE SODIUM [Concomitant]
     Active Substance: PANTOPRAZOLE SODIUM
     Indication: Product used for unknown indication
  10. Folina [Concomitant]
     Indication: Product used for unknown indication
  11. PAROXETINE [Concomitant]
     Active Substance: PAROXETINE
     Indication: Product used for unknown indication
  12. ZAROXOLYN [Concomitant]
     Active Substance: METOLAZONE
     Indication: Product used for unknown indication
  13. LORAZEPAM [Concomitant]
     Active Substance: LORAZEPAM
     Indication: Product used for unknown indication

REACTIONS (3)
  - Melaena [Unknown]
  - Haematemesis [Unknown]
  - Accidental overdose [Unknown]

NARRATIVE: CASE EVENT DATE: 20241031
